FAERS Safety Report 5684407-0 (Version None)
Quarter: 2008Q1

REPORT INFORMATION
  Report Type: 
  Country: None (occurrence: None)
  Receive Date: 20080328
  Receipt Date: 20080325
  Transmission Date: 20080703
  Serious: Yes (Death)
  Sender: FDA-Public Use
  Company Number: BR-ASTRAZENECA-2008UW05487

PATIENT
  Age: 53 Year
  Sex: Female

DRUGS (1)
  1. ZOLADEX [Suspect]
     Indication: UTERINE LEIOMYOMA
     Route: 058
     Dates: start: 20070101

REACTIONS (5)
  - ABDOMINAL DISTENSION [None]
  - METASTASES TO LUNG [None]
  - PLEURAL EFFUSION [None]
  - SARCOMA [None]
  - UTERINE LEIOMYOMA [None]
